FAERS Safety Report 8102777-0 (Version None)
Quarter: 2012Q1

REPORT INFORMATION
  Report Type: 
  Country: None (occurrence: None)
  Receive Date: 20120126
  Receipt Date: 20120119
  Transmission Date: 20120608
  Serious: Yes (Other)
  Sender: FDA-Public Use
  Company Number: 2012SP003662

PATIENT
  Sex: Female

DRUGS (6)
  1. ZOLOFT [Concomitant]
  2. LEXOTAN [Concomitant]
  3. DESLORATADINE [Suspect]
     Indication: URTICARIA
  4. DESLORATADINE [Suspect]
     Indication: RHINITIS ALLERGIC
  5. FORMOTEROL FUMARATE [Concomitant]
  6. DIOVAN [Concomitant]

REACTIONS (2)
  - BALANCE DISORDER [None]
  - DIZZINESS [None]
